FAERS Safety Report 8596181 (Version 3)
Quarter: 2012Q4

REPORT INFORMATION
  Report Type: 
  Country: FR (occurrence: FR)
  Receive Date: 20120605
  Receipt Date: 20121213
  Transmission Date: 20130627
  Serious: Yes (Life-Threatening, Hospitalization)
  Sender: FDA-Public Use
  Company Number: FR-BRISTOL-MYERS SQUIBB COMPANY-16631624

PATIENT
  Age: 70 Year
  Sex: Female
  Weight: 68 kg

DRUGS (11)
  1. COAPROVEL [Suspect]
     Indication: HYPERTENSION
     Dosage: 1DF=300/12.5mg,Rest:19Mar12.
Several years
     Route: 048
     Dates: start: 201104
  2. CIPROFLOXACINE [Suspect]
     Dosage: Ciflox 500
     Route: 048
     Dates: start: 20120405, end: 20120419
  3. LEVOTHYROX [Concomitant]
     Route: 048
  4. AMLOR [Concomitant]
     Route: 048
  5. KARDEGIC [Concomitant]
     Dosage: Oral powder
     Route: 048
  6. FLECAINE [Concomitant]
     Dosage: Flecaine LP Caps
     Route: 048
  7. BISOPROLOL [Concomitant]
     Dosage: Bisoprolol 10 mg
     Route: 048
  8. DAFALGAN [Concomitant]
     Dosage: 500 mg capsule
     Route: 048
  9. NOROXINE [Concomitant]
     Dosage: Noroxine 400
     Route: 048
     Dates: start: 20120301, end: 20120302
  10. BACTRIM FORTE [Concomitant]
     Route: 048
     Dates: start: 20120303, end: 20120311
  11. FURADANTINE [Concomitant]
     Route: 048
     Dates: start: 20120315, end: 20120330

REACTIONS (2)
  - Toxic skin eruption [Not Recovered/Not Resolved]
  - Thrombocytopenic purpura [Recovering/Resolving]
